FAERS Safety Report 9516432 (Version 1)
Quarter: 2013Q3

REPORT INFORMATION
  Report Type: Report from Study
  Country: BR (occurrence: BR)
  Receive Date: 20130911
  Receipt Date: 20130911
  Transmission Date: 20140515
  Serious: Yes (Hospitalization, Other)
  Sender: FDA-Public Use
  Company Number: PHHY2013BR098190

PATIENT
  Sex: Female
  Weight: 86 kg

DRUGS (9)
  1. FORMOTEROL [Suspect]
     Indication: ASTHMA
     Dosage: 12 UG, BID
     Dates: start: 2008
  2. FORMOTEROL [Suspect]
     Dosage: 36 UG, DAILY
  3. FORMOTEROL [Suspect]
     Dosage: 12 UG, BID
  4. BUDESONIDE [Suspect]
     Indication: ASTHMA
     Dosage: 400 UG, BID
     Dates: start: 2008
  5. BUDESONIDE [Suspect]
     Dosage: 1200 UG, DAILY
  6. BUDESONIDE [Suspect]
     Dosage: 400 UG, BID
     Dates: start: 2008
  7. AMINOPHYLLINE [Suspect]
     Dosage: 600 MG, DAILY
  8. PREDNISONE [Concomitant]
     Dosage: 40 MG, DAILY
  9. MONTELUKAST [Concomitant]
     Dosage: 10 MG, QD (AT NIGHT)

REACTIONS (7)
  - Asthma [Unknown]
  - Wheezing [Unknown]
  - Breath sounds abnormal [Unknown]
  - Spirometry abnormal [Unknown]
  - Diabetes mellitus inadequate control [Unknown]
  - Hypertension [Unknown]
  - Obesity [Unknown]
